FAERS Safety Report 20258468 (Version 3)
Quarter: 2022Q1

REPORT INFORMATION
  Report Type: Spontaneous
  Country: BG (occurrence: BG)
  Receive Date: 20211230
  Receipt Date: 20220107
  Transmission Date: 20220424
  Serious: Yes (Life-Threatening, Hospitalization, Other)
  Sender: FDA-Public Use
  Company Number: BG-WOERWAG PHARMA GMBH-2121318

PATIENT
  Age: 84 Year
  Sex: Female

DRUGS (9)
  1. METFORMIN [Suspect]
     Active Substance: METFORMIN HYDROCHLORIDE
     Indication: Suicide attempt
     Dosage: 14000 MILLIGRAM, TOTAL, 14 TABLETS ??? 1000 MG
     Route: 048
  2. METFORMIN [Suspect]
     Active Substance: METFORMIN HYDROCHLORIDE
     Indication: Type 2 diabetes mellitus
     Dosage: 14 DOSAGE FORM (METFORMIN 1000 MG 14 TABLETS AT ONCE), ONCE/SINGLE, PER OS
     Route: 048
  3. METFORMIN [Suspect]
     Active Substance: METFORMIN HYDROCHLORIDE
     Dosage: METFORMIN 1000 MG 14 TABLETS AT ONCE
     Route: 048
  4. BISOPROLOL [Suspect]
     Active Substance: BISOPROLOL
     Indication: Suicide attempt
     Dosage: 140 MILLIGRAM, TOTAL,28 TABLETS ??? 5 MG
     Route: 048
  5. BISOPROLOL [Suspect]
     Active Substance: BISOPROLOL
     Indication: Hypertension
     Dosage: 28 DOSAGE FORM (BISOPROLOL 5 MG 28 TABLETS AT ONCE), ONCE/SINGLE, PER OS
     Route: 048
  6. AMLODIPINE [Suspect]
     Active Substance: AMLODIPINE BESYLATE
     Indication: Suicide attempt
     Dosage: 70 MILLIGRAM, TOTAL,14 TABLETS ??? 5 MG
     Route: 048
  7. AMLODIPINE [Suspect]
     Active Substance: AMLODIPINE BESYLATE
     Indication: Hypertension
     Dosage: 14 DOSAGE FORM (AMLODIPINE 5 MG 14 TABLETS AT ONCE), ONCE/SINGLE, PER OS
     Route: 048
  8. DIGOXIN [Suspect]
     Active Substance: DIGOXIN
     Indication: Suicide attempt
     Dosage: 7 TABLETS
     Route: 048
  9. DIGOXIN [Suspect]
     Active Substance: DIGOXIN
     Indication: Cardiac failure
     Dosage: 7 DOSAGE FORM (DIGOXIN 7 TABLETS AT ONCE), ONCE/SINGLE, PER OS
     Route: 048

REACTIONS (17)
  - Acute kidney injury [Recovered/Resolved]
  - Somnolence [Recovered/Resolved]
  - Kussmaul respiration [Recovered/Resolved]
  - Anuria [Recovered/Resolved]
  - Metabolic acidosis [Recovered/Resolved]
  - Hypotension [Recovering/Resolving]
  - Suicide attempt [Recovered/Resolved]
  - Unresponsive to stimuli [Recovered/Resolved]
  - Shock [Recovered/Resolved]
  - Renal failure [Recovered/Resolved]
  - Intentional product misuse [Recovered/Resolved]
  - Lactic acidosis [Recovered/Resolved]
  - Hypoglycaemia [Recovered/Resolved]
  - Tachycardia [Recovered/Resolved]
  - Intentional overdose [Recovered/Resolved]
  - Overdose [Recovered/Resolved]
  - Loss of consciousness [Recovered/Resolved]

NARRATIVE: CASE EVENT DATE: 20210101
